FAERS Safety Report 13883044 (Version 2)
Quarter: 2017Q3

REPORT INFORMATION
  Report Type: Spontaneous
  Country: US (occurrence: US)
  Receive Date: 20170818
  Receipt Date: 20170828
  Transmission Date: 20171127
  Serious: Yes (Other)
  Sender: FDA-Public Use
  Company Number: US-ACTELION-A-US2017-158200

PATIENT
  Age: 69 Year
  Sex: Female

DRUGS (10)
  1. OPSUMIT [Suspect]
     Active Substance: MACITENTAN
     Indication: PULMONARY ARTERIAL HYPERTENSION
     Dosage: 10 MG, QD
     Route: 048
     Dates: start: 20170728, end: 20170804
  2. METFORMIN [Concomitant]
     Active Substance: METFORMIN HYDROCHLORIDE
     Dosage: 500 MG, QID
  3. VITAMIN C [Concomitant]
     Active Substance: ASCORBIC ACID
     Dosage: 300 MG, QD
  4. SPIRIVA [Concomitant]
     Active Substance: TIOTROPIUM BROMIDE MONOHYDRATE
  5. SIMVASTATIN. [Concomitant]
     Active Substance: SIMVASTATIN
     Dosage: 40 MG, QD
  6. VITAMIN D [Concomitant]
     Active Substance: CHOLECALCIFEROL
     Dosage: UNK
  7. PREDNISONE. [Concomitant]
     Active Substance: PREDNISONE
     Dosage: 10 MG, QD
     Dates: start: 20170731
  8. ASPIRIN. [Concomitant]
     Active Substance: ASPIRIN
     Dosage: 81 MG, QD
     Dates: start: 20111221
  9. PAXIL [Concomitant]
     Active Substance: PAROXETINE HYDROCHLORIDE
     Dosage: 30 MG, QD
  10. ANORO ELLIPTA [Concomitant]
     Active Substance: UMECLIDINIUM BROMIDE\VILANTEROL TRIFENATATE
     Dosage: 6.25 TO 25 MCG, QD
     Dates: start: 20170608

REACTIONS (7)
  - Dyspnoea [Not Recovered/Not Resolved]
  - Peripheral swelling [Unknown]
  - Exercise tolerance decreased [Not Recovered/Not Resolved]
  - Weight increased [Unknown]
  - Oxygen saturation decreased [Not Recovered/Not Resolved]
  - Fluid retention [Unknown]
  - Unevaluable event [Unknown]

NARRATIVE: CASE EVENT DATE: 201708
